FAERS Safety Report 9640669 (Version 2)
Quarter: 2013Q4

REPORT INFORMATION
  Report Type: Report from Study
  Country: US (occurrence: US)
  Receive Date: 20131023
  Receipt Date: 20131023
  Transmission Date: 20140711
  Serious: No
  Sender: FDA-Public Use
  Company Number: US-ABBVIE-13P-163-1125838-00

PATIENT
  Sex: Female

DRUGS (2)
  1. LUPRON DEPOT [Suspect]
     Indication: ENDOMETRIOSIS
     Dates: start: 201204, end: 201207
  2. LUPRON DEPOT [Suspect]
     Dates: start: 201208

REACTIONS (3)
  - Pelvic pain [Unknown]
  - Diarrhoea [Unknown]
  - Pain [Not Recovered/Not Resolved]
